FAERS Safety Report 8566662-2 (Version None)
Quarter: 2012Q3

REPORT INFORMATION
  Report Type: 
  Country: None (occurrence: None)
  Receive Date: 20120803
  Receipt Date: 20120106
  Transmission Date: 20120928
  Serious: No
  Sender: FDA-Public Use
  Company Number: US-ABBOTT-12P-163-0890055-00

PATIENT
  Sex: Female
  Weight: 85.352 kg

DRUGS (7)
  1. SYNTHROID [Concomitant]
     Indication: HYPOTHYROIDISM
  2. LOVAZA [Concomitant]
     Indication: BLOOD TRIGLYCERIDES
  3. MEDROXYPROGESTERONE [Concomitant]
     Indication: HORMONE REPLACEMENT THERAPY
  4. NIASPAN [Suspect]
     Indication: BLOOD CHOLESTEROL DECREASED
     Dosage: AT BEDTIME
     Route: 048
     Dates: start: 20111215
  5. CRESTOR [Concomitant]
     Indication: BLOOD CHOLESTEROL
  6. LISINOPRIL [Concomitant]
     Indication: BLOOD PRESSURE
     Dates: start: 20111215
  7. ESTRADIOL [Concomitant]
     Indication: HORMONE REPLACEMENT THERAPY

REACTIONS (7)
  - FLUSHING [None]
  - SKIN DISORDER [None]
  - NAUSEA [None]
  - PARAESTHESIA [None]
  - DYSPHONIA [None]
  - FEELING HOT [None]
  - SKIN BURNING SENSATION [None]
